FAERS Safety Report 7487428-0 (Version None)
Quarter: 2011Q1

REPORT INFORMATION
  Report Type: 
  Country: None (occurrence: None)
  Receive Date: 20110309
  Receipt Date: 20101202
  Transmission Date: 20110831
  Serious: No
  Sender: FDA-Public Use
  Company Number: 2010SP062991

PATIENT
  Age: 40 Year
  Sex: Male

DRUGS (3)
  1. SAPHRIS [Suspect]
     Indication: SCHIZOPHRENIA
     Dosage: SL
     Route: 060
  2. SAPHRIS [Suspect]
     Indication: BIPOLAR DISORDER
     Dosage: SL
     Route: 060
  3. TRILEPTAL [Concomitant]

REACTIONS (4)
  - FEELING HOT [None]
  - MUSCLE SPASMS [None]
  - PYREXIA [None]
  - MUSCULOSKELETAL STIFFNESS [None]
